FAERS Safety Report 12206983 (Version 2)
Quarter: 2016Q1

REPORT INFORMATION
  Report Type: Spontaneous
  Country: US (occurrence: US)
  Receive Date: 20160324
  Receipt Date: 20160325
  Transmission Date: 20160526
  Serious: Yes (Other)
  Sender: FDA-Public Use
  Company Number: US-009507513-1603USA006199

PATIENT
  Age: 38 Year
  Sex: Female

DRUGS (5)
  1. CELESTONE [Suspect]
     Active Substance: BETAMETHASONE
     Dosage: 2 ML, DILUTED IN A 1 LITER BAG OF LACTATED RINGER^S SOLUTION, ONCE
     Route: 042
     Dates: start: 20160310, end: 20160310
  2. ZOFRAN [Concomitant]
     Active Substance: ONDANSETRON HYDROCHLORIDE
  3. REGLAN [Concomitant]
     Active Substance: METOCLOPRAMIDE HYDROCHLORIDE
  4. FENTANYL. [Concomitant]
     Active Substance: FENTANYL
  5. PITOCIN [Concomitant]
     Active Substance: OXYTOCIN
     Route: 042

REACTIONS (3)
  - No adverse event [Unknown]
  - Medication error [Unknown]
  - Off label use [Unknown]

NARRATIVE: CASE EVENT DATE: 20160310
